FAERS Safety Report 14999285 (Version 4)
Quarter: 2018Q4

REPORT INFORMATION
  Report Type: Report from Study
  Country: None (occurrence: US)
  Receive Date: 20180612
  Receipt Date: 20181001
  Transmission Date: 20190204
  Serious: Yes (Other)
  Sender: FDA-Public Use
  Company Number: US-ABBVIE-18K-163-2383303-00

PATIENT
  Age: 75 Year
  Sex: Male
  Weight: 99.88 kg

DRUGS (1)
  1. HUMIRA [Suspect]
     Active Substance: ADALIMUMAB
     Indication: UVEITIS
     Route: 058
     Dates: start: 201711

REACTIONS (5)
  - Neovascular age-related macular degeneration [Recovering/Resolving]
  - Eye disorder [Unknown]
  - Eyelid irritation [Recovered/Resolved]
  - Intraocular pressure increased [Unknown]
  - Uveitis [Recovering/Resolving]

NARRATIVE: CASE EVENT DATE: 201806
